FAERS Safety Report 15963126 (Version 1)
Quarter: 2019Q1

REPORT INFORMATION
  Report Type: Spontaneous
  Country: US (occurrence: US)
  Receive Date: 20190214
  Receipt Date: 20190214
  Transmission Date: 20190417
  Serious: No
  Sender: FDA-Public Use
  Company Number: US-ALLERGAN-1846620US

PATIENT
  Sex: Female

DRUGS (2)
  1. TAZAROTENE - BP [Suspect]
     Active Substance: TAZAROTENE
     Indication: ACNE
     Dosage: UNK
     Route: 065
  2. TAZAROTENE - BP [Suspect]
     Active Substance: TAZAROTENE
     Indication: SKIN WRINKLING

REACTIONS (3)
  - Burning sensation [Unknown]
  - Product use in unapproved indication [Unknown]
  - Skin exfoliation [Unknown]
